FAERS Safety Report 6844566-0 (Version None)
Quarter: 2010Q2

REPORT INFORMATION
  Report Type: 
  Country: None (occurrence: None)
  Receive Date: 20100629
  Receipt Date: 20100426
  Transmission Date: 20101027
  Serious: Yes (Other)
  Sender: FDA-Public Use
  Company Number: US-WYE-H14822010

PATIENT
  Sex: Female

DRUGS (4)
  1. PRISTIQ [Suspect]
     Indication: DEPRESSION
     Dosage: 50 MG 1X PER 1 DAY
     Dates: start: 20100401
  2. LAMICTAL [Concomitant]
  3. ABILIFY [Concomitant]
  4. ADDERALL 10 [Concomitant]

REACTIONS (1)
  - DRUG INEFFECTIVE [None]
